FAERS Safety Report 25016521 (Version 1)
Quarter: 2025Q1

REPORT INFORMATION
  Report Type: Spontaneous
  Country: JP (occurrence: JP)
  Receive Date: 20250227
  Receipt Date: 20250227
  Transmission Date: 20250408
  Serious: Yes (Other)
  Sender: QUAGEN PHARMACEUTICALS
  Company Number: JP-QUAGEN-2025QUALIT00252

PATIENT
  Age: 26 Year
  Sex: Female

DRUGS (1)
  1. PROPYLTHIOURACIL [Suspect]
     Active Substance: PROPYLTHIOURACIL
     Indication: Graves^ disease
     Route: 065

REACTIONS (3)
  - Aortic wall hypertrophy [Recovered/Resolved]
  - Anti-neutrophil cytoplasmic antibody positive vasculitis [Recovered/Resolved]
  - Exposure during pregnancy [Unknown]
